FAERS Safety Report 7100244-4 (Version None)
Quarter: 2010Q4

REPORT INFORMATION
  Report Type: 
  Country: None (occurrence: None)
  Receive Date: 20101112
  Receipt Date: 20100202
  Transmission Date: 20110411
  Serious: Yes (Disabling, Other)
  Sender: FDA-Public Use
  Company Number: US-GENENTECH-309533

PATIENT
  Sex: Female
  Weight: 96.145 kg

DRUGS (12)
  1. OMALIZUMAB [Suspect]
     Indication: ASTHMA
     Dosage: 300 MG, Q4W
     Dates: start: 20060922
  2. IMMUNOTHERAPY (AEROALLERGENS + DUST MITE) [Concomitant]
     Indication: HYPERSENSITIVITY
  3. XOPENEX [Concomitant]
     Indication: ASTHMA
  4. ALVESCO [Concomitant]
     Indication: ASTHMA
  5. NEXIUM [Concomitant]
     Indication: GASTROOESOPHAGEAL REFLUX DISEASE
  6. REGLAN [Concomitant]
     Indication: GASTROOESOPHAGEAL REFLUX DISEASE
  7. SINGULAIR [Concomitant]
     Indication: HYPERSENSITIVITY
     Dosage: UNK
     Dates: start: 20050101
  8. SINGULAIR [Concomitant]
     Indication: ASTHMA
  9. SPIRIVA [Concomitant]
     Indication: ASTHMA
     Dosage: UNK
     Dates: start: 20040101
  10. AMITRIPTYLINE HCL [Concomitant]
     Indication: HYPERSENSITIVITY
     Dosage: UNK
     Dates: start: 20050101
  11. EYE DROPS NOS [Concomitant]
     Indication: HYPERSENSITIVITY
     Dosage: UNK
     Dates: start: 20070101
  12. ZEGERID [Concomitant]
     Indication: GASTROOESOPHAGEAL REFLUX DISEASE
     Dosage: UNK
     Dates: start: 20080101

REACTIONS (1)
  - ANAPHYLACTIC REACTION [None]
